FAERS Safety Report 8051008-9 (Version None)
Quarter: 2012Q1

REPORT INFORMATION
  Report Type: 
  Country: None (occurrence: None)
  Receive Date: 20120117
  Receipt Date: 20120111
  Transmission Date: 20120608
  Serious: Yes (Hospitalization)
  Sender: FDA-Public Use
  Company Number: PHEH2012US001154

PATIENT
  Sex: Male

DRUGS (1)
  1. EXJADE [Suspect]
     Indication: IRON METABOLISM DISORDER
     Dosage: 500 MG, TID
     Route: 048
     Dates: start: 20111027

REACTIONS (3)
  - ABASIA [None]
  - PAIN IN EXTREMITY [None]
  - DYSSTASIA [None]
